FAERS Safety Report 19164688 (Version 1)
Quarter: 2021Q2

REPORT INFORMATION
  Report Type: Report from Study
  Country: TH (occurrence: TH)
  Receive Date: 20210421
  Receipt Date: 20210421
  Transmission Date: 20210717
  Serious: Yes (Hospitalization)
  Sender: FDA-Public Use
  Company Number: NVSC2020TH311982

PATIENT
  Sex: Female
  Weight: 50.8 kg

DRUGS (8)
  1. NORTRIPTYLINE [Concomitant]
     Active Substance: NORTRIPTYLINE
     Indication: PRODUCT USED FOR UNKNOWN INDICATION
     Dosage: 1 DF, QD HS
     Route: 048
  2. VINATAL [Concomitant]
     Indication: PRODUCT USED FOR UNKNOWN INDICATION
     Dosage: 1 DF, QD
     Route: 048
  3. PLASIL [Concomitant]
     Active Substance: METOCLOPRAMIDE HYDROCHLORIDE
     Indication: NAUSEA
     Dosage: 1 DF, PRN, Q6HRS (10)
     Route: 048
  4. KISQALI [Suspect]
     Active Substance: RIBOCICLIB
     Indication: BREAST CANCER METASTATIC
     Dosage: 200 MG, TID (TABLET, PC MORNING)
     Route: 048
     Dates: start: 20201019, end: 20201109
  5. FEMARA [Suspect]
     Active Substance: LETROZOLE
     Indication: PRODUCT USED FOR UNKNOWN INDICATION
     Dosage: 2.5 MG, QD (PC MORNING)
     Route: 048
     Dates: start: 20191111, end: 20191211
  6. ZOLADEX [Concomitant]
     Active Substance: GOSERELIN ACETATE
     Indication: PRODUCT USED FOR UNKNOWN INDICATION
     Dosage: 3.6 MG (1 AMP, SYR)
     Route: 058
     Dates: start: 20201019
  7. FERROUS [Concomitant]
     Active Substance: IRON
     Indication: PRODUCT USED FOR UNKNOWN INDICATION
     Dosage: 1 DF, BID (MORNING AND EVENING)
     Route: 048
  8. PLASIL [Concomitant]
     Active Substance: METOCLOPRAMIDE HYDROCHLORIDE
     Indication: VOMITING

REACTIONS (4)
  - Chest pain [Unknown]
  - Abnormal faeces [Unknown]
  - Pain [Unknown]
  - Wound complication [Unknown]
